FAERS Safety Report 6259833-1 (Version None)
Quarter: 2009Q3

REPORT INFORMATION
  Report Type: 
  Country: None (occurrence: None)
  Receive Date: 20090708
  Receipt Date: 20090629
  Transmission Date: 20100115
  Serious: Yes (Hospitalization)
  Sender: FDA-Public Use
  Company Number: FR-EISAI INC.-E3810-02962-SPO-FR

PATIENT
  Age: 64 Year
  Sex: Female

DRUGS (6)
  1. PARIET (RABEPRAZOLE) [Suspect]
     Dosage: UNKNOWN
     Route: 048
     Dates: start: 20060101, end: 20061101
  2. PROPRANOLOL HYDROCHLORIDE [Concomitant]
     Indication: TACHYCARDIA
     Dates: start: 20060501
  3. TOCOPHERYL ACETATE [Concomitant]
  4. EFFEXOR [Concomitant]
     Indication: GASTROINTESTINAL DISORDER
  5. EFFEXOR [Concomitant]
     Indication: SKIN REACTION
  6. XANAX [Concomitant]
     Indication: ANXIETY
     Route: 048
     Dates: start: 20020101

REACTIONS (1)
  - CUTANEOUS LUPUS ERYTHEMATOSUS [None]
